FAERS Safety Report 8933758 (Version 1)
Quarter: 2012Q4

REPORT INFORMATION
  Report Type: 
  Country: JP (occurrence: JP)
  Receive Date: 20121129
  Receipt Date: 20121129
  Transmission Date: 20130627
  Serious: Yes (Other)
  Sender: FDA-Public Use
  Company Number: JP-ELI_LILLY_AND_COMPANY-JP201211005980

PATIENT
  Sex: Female

DRUGS (2)
  1. FORTEO [Suspect]
     Route: 058
  2. FORTEO [Suspect]
     Route: 058

REACTIONS (2)
  - Surgery [Recovered/Resolved]
  - Medication error [Unknown]
